FAERS Safety Report 8036052-X (Version None)
Quarter: 2012Q1

REPORT INFORMATION
  Report Type: 
  Country: None (occurrence: None)
  Receive Date: 20120106
  Receipt Date: 20111228
  Transmission Date: 20120608
  Serious: Yes (Other)
  Sender: FDA-Public Use
  Company Number: 2011MA018070

PATIENT
  Age: 31 Year
  Sex: Female
  Weight: 61.2356 kg

DRUGS (10)
  1. GABAPENTIN [Suspect]
     Indication: BIPOLAR DISORDER
     Dosage: 300 MG;QD
     Dates: start: 20110101
  2. GABAPENTIN [Suspect]
     Indication: DEPRESSION
     Dosage: 300 MG;QD
     Dates: start: 20110101
  3. GABAPENTIN [Suspect]
     Indication: GENERALISED ANXIETY DISORDER
     Dosage: 300 MG;QD
     Dates: start: 20110101
  4. GABAPENTIN [Suspect]
     Indication: POST-TRAUMATIC STRESS DISORDER
     Dosage: 300 MG;QD
     Dates: start: 20110101
  5. ABILIFY [Suspect]
     Indication: PRODUCT USED FOR UNKNOWN INDICATION
     Dosage: 5 MG;QD
  6. ADDERALL 5 [Suspect]
     Indication: PRODUCT USED FOR UNKNOWN INDICATION
     Dosage: 40 MG;QD
     Dates: end: 20110101
  7. VITAMIN B-12 [Suspect]
     Indication: MOOD SWINGS
     Dosage: QW
  8. POTASSIUM CITRATE [Suspect]
     Indication: NEPHROLITHIASIS
     Dosage: QD
  9. NEOCON [Suspect]
     Indication: CONTRACEPTION
  10. XANAX [Suspect]
     Indication: BIPOLAR DISORDER
     Dosage: 1 MG;QD

REACTIONS (19)
  - DYSKINESIA [None]
  - HEADACHE [None]
  - SOMNOLENCE [None]
  - DIZZINESS [None]
  - MOOD SWINGS [None]
  - VISUAL IMPAIRMENT [None]
  - COORDINATION ABNORMAL [None]
  - FATIGUE [None]
  - ADVERSE DRUG REACTION [None]
  - SPEECH DISORDER [None]
  - TREMOR [None]
  - FEELING ABNORMAL [None]
  - SUICIDAL IDEATION [None]
  - AMNESIA [None]
  - NIGHTMARE [None]
  - MANIA [None]
  - ATTENTION DEFICIT/HYPERACTIVITY DISORDER [None]
  - DISORIENTATION [None]
  - PYREXIA [None]
